FAERS Safety Report 24749189 (Version 2)
Quarter: 2025Q1

REPORT INFORMATION
  Report Type: Spontaneous
  Country: US (occurrence: US)
  Receive Date: 20241218
  Receipt Date: 20250205
  Transmission Date: 20250408
  Serious: Yes (Death)
  Sender: INTRA-CELLULAR THERAPIES
  Company Number: US-INTRA-CELLULAR THERAPIES, INC.-2024ICT01993

PATIENT
  Age: 11 Year
  Sex: Male
  Weight: 29.841 kg

DRUGS (7)
  1. CAPLYTA [Suspect]
     Active Substance: LUMATEPERONE
     Indication: Affective disorder
     Dosage: 21 MG, 1X/DAY IN THE MORNING (ALONG WITH 10.5MG) TOTAL DAILY DOSE 31.5 MG
     Route: 048
  2. CAPLYTA [Suspect]
     Active Substance: LUMATEPERONE
     Indication: Affective disorder
     Dosage: 10.5 MG, 1X/DAY IN THE MORNING(ALONG WITH 21MG) TOTAL DAILY DOSE 31.5 MG
     Dates: start: 202411
  3. DYANAVEL XR [Suspect]
     Active Substance: AMPHETAMINE
  4. DYANAVEL XR [Suspect]
     Active Substance: AMPHETAMINE
     Dates: start: 202411
  5. CLONIDINE [Suspect]
     Active Substance: CLONIDINE
     Dosage: 0.2 MG, 1X/DAY AT NIGHT
  6. CLONIDINE [Suspect]
     Active Substance: CLONIDINE
     Dosage: 0.2 MG, 2X/DAY
     Dates: start: 202411
  7. PROZAC [Concomitant]
     Active Substance: FLUOXETINE HYDROCHLORIDE
     Dosage: 20 MG, 1X/DAY IN THE MORNING

REACTIONS (13)
  - Death [Fatal]
  - Tic [Unknown]
  - Muscle spasms [Unknown]
  - Poor quality sleep [Unknown]
  - Constipation [Unknown]
  - Irritability [Unknown]
  - Discomfort [Unknown]
  - Muscle twitching [Unknown]
  - Fatigue [Unknown]
  - Restlessness [Unknown]
  - Abdominal pain upper [Unknown]
  - Unevaluable event [Unknown]
  - Off label use [Recovered/Resolved]

NARRATIVE: CASE EVENT DATE: 20241001
